FAERS Safety Report 24001470 (Version 2)
Quarter: 2024Q3

REPORT INFORMATION
  Report Type: Spontaneous
  Country: JP (occurrence: JP)
  Receive Date: 20240621
  Receipt Date: 20240705
  Transmission Date: 20241016
  Serious: Yes (Hospitalization)
  Sender: BAUSCH AND LOMB
  Company Number: JP-BAUSCH-BL-2024-009584

PATIENT

DRUGS (1)
  1. BRODALUMAB [Suspect]
     Active Substance: BRODALUMAB
     Indication: Product used for unknown indication
     Dosage: 1X/2 WEEKS
     Route: 058

REACTIONS (2)
  - Hospitalisation [Unknown]
  - Laparotomy [Unknown]
